FAERS Safety Report 6543299-8 (Version None)
Quarter: 2010Q1

REPORT INFORMATION
  Report Type: 
  Country: None (occurrence: None)
  Receive Date: 20100120
  Receipt Date: 20100107
  Transmission Date: 20100710
  Serious: Yes (Hospitalization, Other)
  Sender: FDA-Public Use
  Company Number: GB-PFIZER INC-2009296120

PATIENT
  Sex: Male

DRUGS (1)
  1. CABASER [Suspect]
     Indication: RESTLESS LEGS SYNDROME
     Dosage: 5 MG, UNK
     Dates: start: 20010101, end: 20070101

REACTIONS (2)
  - DYSPNOEA [None]
  - HEART VALVE INCOMPETENCE [None]
